FAERS Safety Report 4816145-8 (Version None)
Quarter: 2005Q4

REPORT INFORMATION
  Report Type: 
  Country: None (occurrence: None)
  Receive Date: 20051026
  Receipt Date: 20051010
  Transmission Date: 20060501
  Serious: Yes (Hospitalization)
  Sender: FDA-Public Use
  Company Number: 8012744

PATIENT
  Sex: Female
  Weight: 90.5 kg

DRUGS (7)
  1. METOLAZONE [Suspect]
     Indication: OEDEMA
     Dosage: PO
     Route: 048
  2. DURAGESIC-100 [Suspect]
     Indication: PAIN
     Dosage: TRD
  3. FUROSEMIDE [Suspect]
     Indication: OEDEMA
     Dosage: PO
     Route: 048
  4. NORVASC [Concomitant]
  5. CLONIDINE [Concomitant]
  6. POTASSIUM [Concomitant]
  7. CYMBALTA [Concomitant]

REACTIONS (2)
  - APPLICATION SITE DERMATITIS [None]
  - BLOOD POTASSIUM DECREASED [None]
